FAERS Safety Report 20696524 (Version 1)
Quarter: 2022Q2

REPORT INFORMATION
  Report Type: Spontaneous
  Country: US (occurrence: None)
  Receive Date: 20220408
  Receipt Date: 20220408
  Transmission Date: 20220721
  Serious: No
  Sender: FDA-Public Use
  Company Number: None

PATIENT
  Sex: Female

DRUGS (1)
  1. NEXPLANON [Suspect]
     Active Substance: ETONOGESTREL
     Dosage: FREQUENCY : ONCE;?
     Route: 060

REACTIONS (6)
  - Pelvic pain [None]
  - Muscle spasms [None]
  - Nausea [None]
  - Dizziness [None]
  - Headache [None]
  - Menometrorrhagia [None]
